FAERS Safety Report 8125351-9 (Version None)
Quarter: 2012Q1

REPORT INFORMATION
  Report Type: 
  Country: None (occurrence: None)
  Receive Date: 20120209
  Receipt Date: 20120207
  Transmission Date: 20120608
  Serious: Yes (Hospitalization)
  Sender: FDA-Public Use
  Company Number: US-GLAXOSMITHKLINE-A0965196A

PATIENT
  Age: 51 Year
  Sex: Female
  Weight: 108.2 kg

DRUGS (15)
  1. MELPHALAN HYDROCHLORIDE [Suspect]
     Indication: AMYLOIDOSIS
     Dosage: 100MGM2 CYCLIC
     Route: 042
  2. FLUTICASONE PROPIONATE [Concomitant]
  3. FLUCONAZOLE [Concomitant]
  4. LORAZEPAM [Concomitant]
  5. OMEPRAZOLE [Concomitant]
  6. VELCADE [Suspect]
     Indication: AMYLOIDOSIS
     Dosage: 1MGM2 CYCLIC
     Route: 042
     Dates: start: 20120113, end: 20120123
  7. DEXAMETHASONE [Suspect]
     Indication: AMYLOIDOSIS
     Dosage: 4MG CYCLIC
     Route: 048
  8. MIDODRINE HYDROCHLORIDE [Concomitant]
  9. VENTOLIN HFA [Concomitant]
  10. PROCHLORPERAZINE MALEATE [Concomitant]
  11. ACYCLOVIR [Concomitant]
  12. GRANISETRON HYDROCHLORIDE [Concomitant]
  13. PREVIDENT [Concomitant]
  14. FUROSEMIDE [Concomitant]
  15. LEVOTHYROXINE SODIUM [Concomitant]

REACTIONS (1)
  - SYNCOPE [None]
